FAERS Safety Report 8815867 (Version 2)
Quarter: 2012Q4

REPORT INFORMATION
  Report Type: 
  Country: IE (occurrence: IE)
  Receive Date: 20120928
  Receipt Date: 20121010
  Transmission Date: 20130627
  Serious: Yes (Disabling, Other)
  Sender: FDA-Public Use
  Company Number: IE-ROCHE-1137011

PATIENT
  Sex: Male

DRUGS (5)
  1. LUCENTIS [Suspect]
     Indication: AGE-RELATED MACULAR DEGENERATION
     Route: 050
     Dates: start: 20120106
  2. LUCENTIS [Suspect]
     Route: 050
     Dates: start: 20120214
  3. LUCENTIS [Suspect]
     Route: 050
     Dates: start: 20120327
  4. LUCENTIS [Suspect]
     Route: 050
     Dates: start: 20120706
  5. AVASTIN [Concomitant]
     Route: 065
     Dates: start: 20110715

REACTIONS (1)
  - Macular scar [Not Recovered/Not Resolved]
